FAERS Safety Report 21409788 (Version 1)
Quarter: 2022Q4

REPORT INFORMATION
  Report Type: Spontaneous
  Country: US (occurrence: US)
  Receive Date: 20221005
  Receipt Date: 20221005
  Transmission Date: 20230113
  Serious: No
  Sender: FDA-Public Use
  Company Number: US-BoehringerIngelheim-2022-BI-195625

PATIENT
  Age: 75 Year
  Sex: Male

DRUGS (5)
  1. JARDIANCE [Suspect]
     Active Substance: EMPAGLIFLOZIN
     Indication: Product used for unknown indication
     Dates: start: 20220905
  2. MOUNJARO [Suspect]
     Active Substance: TIRZEPATIDE
     Indication: Product used for unknown indication
     Dosage: FORM OF ADMIN : IN PRE FILLED PEN
     Dates: start: 20220829
  3. HUMALOG [Suspect]
     Active Substance: INSULIN LISPRO
     Indication: Product used for unknown indication
     Dosage: PEN?(26UNITS BEFORE BREAKFAST + LUNCH + 36 UNITS BEFORE DINNER)
  4. LANTUS [Concomitant]
     Active Substance: INSULIN GLARGINE
     Indication: Product used for unknown indication
  5. ELIQUIS [Concomitant]
     Active Substance: APIXABAN
     Indication: Product used for unknown indication

REACTIONS (5)
  - Blood glucose decreased [Unknown]
  - Insomnia [Recovered/Resolved]
  - Decreased appetite [Unknown]
  - Drug interaction [Unknown]
  - Glycosylated haemoglobin increased [Unknown]
